FAERS Safety Report 23771376 (Version 1)
Quarter: 2024Q2

REPORT INFORMATION
  Report Type: Spontaneous
  Country: CA (occurrence: CA)
  Receive Date: 20240423
  Receipt Date: 20240423
  Transmission Date: 20240716
  Serious: Yes (Other)
  Sender: FDA-Public Use
  Company Number: CA-SANDOZ-SDZ2024CA041508

PATIENT
  Sex: Male

DRUGS (1)
  1. HYRIMOZ [Suspect]
     Active Substance: ADALIMUMAB-ADAZ
     Indication: Ankylosing spondylitis
     Dosage: 40MG SC Q2WEEKS;EVERY TWO WEEKS
     Route: 058
     Dates: start: 20210715

REACTIONS (2)
  - Ankylosing spondylitis [Unknown]
  - Product dose omission issue [Unknown]
